FAERS Safety Report 5778097-6 (Version None)
Quarter: 2008Q2

REPORT INFORMATION
  Report Type: 
  Country: None (occurrence: None)
  Receive Date: 20080619
  Receipt Date: 20080610
  Transmission Date: 20081010
  Serious: No
  Sender: FDA-Public Use
  Company Number: MX-ELI_LILLY_AND_COMPANY-MX200806002576

PATIENT
  Age: 40 Year
  Sex: Male
  Weight: 92 kg

DRUGS (2)
  1. CIALIS [Suspect]
     Indication: ERECTILE DYSFUNCTION
     Dosage: 20 MG, UNKNOWN
     Route: 048
     Dates: start: 20080608, end: 20080608
  2. ASPIRIN [Concomitant]
     Dosage: UNK UNK, OTHER
     Route: 065

REACTIONS (4)
  - HEADACHE [None]
  - PAIN IN EXTREMITY [None]
  - VISION BLURRED [None]
  - VISUAL DISTURBANCE [None]
